FAERS Safety Report 6039587-4 (Version None)
Quarter: 2009Q1

REPORT INFORMATION
  Report Type: 
  Country: None (occurrence: None)
  Receive Date: 20090116
  Receipt Date: 20090113
  Transmission Date: 20090719
  Serious: Yes (Death)
  Sender: FDA-Public Use
  Company Number: US-BRISTOL-MYERS SQUIBB COMPANY-14469001

PATIENT
  Age: 34 Year
  Sex: Male

DRUGS (11)
  1. TRAZODONE HCL [Suspect]
     Route: 048
  2. ATENOLOL [Suspect]
     Route: 048
  3. PHENYTOIN [Suspect]
     Route: 048
  4. FENOFIBRATE [Suspect]
     Route: 048
  5. OXYCODONE [Suspect]
     Route: 048
  6. COLCHICINE [Suspect]
     Route: 048
  7. GEMFIBROZIL [Suspect]
     Route: 048
  8. MIRTAZAPINE [Suspect]
     Route: 048
  9. HALOPERIDOL [Suspect]
     Route: 048
  10. INDOMETHACIN [Suspect]
     Route: 048
  11. LOSARTAN POTASSIUM [Suspect]
     Route: 048

REACTIONS (1)
  - COMPLETED SUICIDE [None]
